FAERS Safety Report 5860335-2 (Version None)
Quarter: 2008Q3

REPORT INFORMATION
  Report Type: 
  Country: None (occurrence: None)
  Receive Date: 20080827
  Receipt Date: 20070730
  Transmission Date: 20090109
  Serious: No
  Sender: FDA-Public Use
  Company Number: US-ABBOTT-07P-163-0376277-00

PATIENT
  Sex: Male
  Weight: 78.542 kg

DRUGS (6)
  1. NIASPAN [Suspect]
     Indication: BLOOD CHOLESTEROL
     Route: 048
     Dates: start: 20070704
  2. INSULIN [Concomitant]
     Indication: DIABETES MELLITUS
     Route: 058
  3. FOSINOPRIL SODIUM [Concomitant]
     Indication: BLOOD PRESSURE
     Route: 048
  4. CLOPIDOGREL [Concomitant]
     Indication: CARDIAC DISORDER
     Route: 048
  5. ACETYLSALICYLIC ACID SRT [Concomitant]
     Indication: CARDIAC DISORDER
     Route: 048
  6. INEGY [Concomitant]
     Indication: BLOOD CHOLESTEROL
     Route: 048

REACTIONS (2)
  - FLUSHING [None]
  - HYPOTENSION [None]
